FAERS Safety Report 4928863-1 (Version None)
Quarter: 2006Q1

REPORT INFORMATION
  Report Type: 
  Country: None (occurrence: None)
  Receive Date: 20060224
  Receipt Date: 20060214
  Transmission Date: 20060701
  Serious: Yes (Other)
  Sender: FDA-Public Use
  Company Number: HQWYE587031JAN06

PATIENT
  Sex: Male

DRUGS (4)
  1. EFFEXOR XR [Suspect]
     Indication: MAJOR DEPRESSION
     Dosage: 225 MG 1X PER 1 DAY
     Route: 048
     Dates: end: 20060101
  2. NORVASC [Concomitant]
  3. COVERSYL (PERINDOPRIL) [Concomitant]
  4. HYTRIN [Concomitant]

REACTIONS (4)
  - BALANCE DISORDER [None]
  - DIZZINESS [None]
  - FALL [None]
  - TREMOR [None]
